FAERS Safety Report 17889662 (Version 3)
Quarter: 2020Q3

REPORT INFORMATION
  Report Type: Report from Study
  Country: None (occurrence: US)
  Receive Date: 20200612
  Receipt Date: 20200820
  Transmission Date: 20201103
  Serious: Yes (Hospitalization, Other)
  Sender: FDA-Public Use
  Company Number: US-ABBVIE-20K-163-3442574-00

PATIENT
  Age: 70 Year
  Sex: Female
  Weight: 64.47 kg

DRUGS (11)
  1. FELODIPINE. [Concomitant]
     Active Substance: FELODIPINE
     Indication: PRODUCT USED FOR UNKNOWN INDICATION
     Route: 065
  2. LOSARTAN. [Concomitant]
     Active Substance: LOSARTAN
     Indication: BLOOD PRESSURE MEASUREMENT
  3. IRON SULFATE [Concomitant]
     Active Substance: FERROUS SULFATE ANHYDROUS
     Indication: ANAEMIA
  4. DICLOFENAC SODIUM DR [Concomitant]
     Active Substance: DICLOFENAC SODIUM
     Indication: PRODUCT USED FOR UNKNOWN INDICATION
     Route: 065
  5. ATROVASTATIN [Concomitant]
     Active Substance: ATORVASTATIN CALCIUM
     Indication: BLOOD CHOLESTEROL
  6. GABAPENTIN. [Concomitant]
     Active Substance: GABAPENTIN
     Indication: PRODUCT USED FOR UNKNOWN INDICATION
     Route: 065
  7. RINVOQ [Suspect]
     Active Substance: UPADACITINIB
     Indication: RHEUMATOID ARTHRITIS
     Route: 048
     Dates: start: 20191014, end: 20200715
  8. RINVOQ [Suspect]
     Active Substance: UPADACITINIB
     Route: 048
     Dates: start: 20200806
  9. LEFLUNOMIDE. [Concomitant]
     Active Substance: LEFLUNOMIDE
     Indication: PRODUCT USED FOR UNKNOWN INDICATION
     Route: 065
  10. LEVOTHYROXINE SODIUM. [Concomitant]
     Active Substance: LEVOTHYROXINE SODIUM
     Indication: THYROID DISORDER
  11. HYDROCHLOROTHIAZIDE. [Concomitant]
     Active Substance: HYDROCHLOROTHIAZIDE
     Indication: PRODUCT USED FOR UNKNOWN INDICATION
     Route: 065

REACTIONS (15)
  - Herpes zoster [Recovering/Resolving]
  - Back pain [Recovered/Resolved]
  - Cholelithiasis [Recovered/Resolved]
  - Pain [Recovered/Resolved]
  - Smear cervix abnormal [Recovering/Resolving]
  - Pain in extremity [Unknown]
  - Sensitive skin [Not Recovered/Not Resolved]
  - Feeling abnormal [Recovered/Resolved]
  - Uterine cyst [Recovered/Resolved]
  - Loss of personal independence in daily activities [Not Recovered/Not Resolved]
  - Nervousness [Recovered/Resolved]
  - Paraesthesia [Recovered/Resolved]
  - Urticaria [Recovered/Resolved]
  - Asthenia [Recovered/Resolved]
  - Malaise [Recovered/Resolved]

NARRATIVE: CASE EVENT DATE: 201911
